FAERS Safety Report 19848436 (Version 1)
Quarter: 2021Q3

REPORT INFORMATION
  Report Type: Spontaneous
  Country: US (occurrence: US)
  Receive Date: 20210918
  Receipt Date: 20210918
  Transmission Date: 20211014
  Serious: No
  Sender: FDA-Public Use
  Company Number: US-BION-009681

PATIENT
  Age: 78 Year
  Sex: Female

DRUGS (2)
  1. ZYRTEC [Suspect]
     Active Substance: CETIRIZINE HYDROCHLORIDE
     Indication: HYPERSENSITIVITY
     Dosage: DOSE: TWICE A DAY, 1 TABLET EACH TIME
     Dates: start: 20210414
  2. LOZARTAN [Concomitant]
     Indication: HYPERTENSION

REACTIONS (1)
  - Hypoaesthesia oral [Recovering/Resolving]

NARRATIVE: CASE EVENT DATE: 20210414
